FAERS Safety Report 5422163-1 (Version None)
Quarter: 2007Q3

REPORT INFORMATION
  Report Type: 
  Country: None (occurrence: None)
  Receive Date: 20070822
  Receipt Date: 20070817
  Transmission Date: 20080115
  Serious: Yes (Life-Threatening, Hospitalization)
  Sender: FDA-Public Use
  Company Number: PHEH2007US11275

PATIENT
  Age: 56 Year
  Sex: Male

DRUGS (2)
  1. TEKTURNA [Suspect]
  2. ACE INHIBITOR NOS [Suspect]

REACTIONS (2)
  - AZOTAEMIA [None]
  - HYPERKALAEMIA [None]
